FAERS Safety Report 15103251 (Version 1)
Quarter: 2018Q3

REPORT INFORMATION
  Report Type: Spontaneous
  Country: FR (occurrence: FR)
  Receive Date: 20180703
  Receipt Date: 20180703
  Transmission Date: 20181010
  Serious: Yes (Other)
  Sender: FDA-Public Use
  Company Number: FR-PFIZER INC-2018261780

PATIENT
  Sex: Male

DRUGS (2)
  1. CABERGOLINE. [Suspect]
     Active Substance: CABERGOLINE
     Dosage: 2 DF, MONTHLY (TWO TABLETS PER MONTH TAKEN DURING ABOUT THREE YEARS)
  2. CABERGOLINE. [Suspect]
     Active Substance: CABERGOLINE
     Indication: PITUITARY TUMOUR BENIGN
     Dosage: 2 DF, WEEKLY(TWO TABLETS PER WEEK TAKEN DURING MORE THAN TEN YEARS)

REACTIONS (3)
  - Pericardial effusion [Not Recovered/Not Resolved]
  - Product use in unapproved indication [Unknown]
  - Pleural effusion [Unknown]
